FAERS Safety Report 18643134 (Version 1)
Quarter: 2020Q4

REPORT INFORMATION
  Report Type: Spontaneous
  Country: CN (occurrence: CN)
  Receive Date: 20201221
  Receipt Date: 20201221
  Transmission Date: 20210114
  Serious: Yes (Other)
  Sender: FDA-Public Use
  Company Number: CN-ROCHE-2731602

PATIENT
  Age: 31 Year
  Sex: Male

DRUGS (1)
  1. PEGASYS [Suspect]
     Active Substance: PEGINTERFERON ALFA-2A
     Indication: PLATELET DISORDER
     Route: 058
     Dates: start: 2020

REACTIONS (3)
  - Off label use [Unknown]
  - Liver injury [Unknown]
  - Intentional product use issue [Unknown]
